FAERS Safety Report 4983613-8 (Version None)
Quarter: 2006Q2

REPORT INFORMATION
  Report Type: 
  Country: None (occurrence: None)
  Receive Date: 20060425
  Receipt Date: 20060425
  Transmission Date: 20061013
  Serious: Yes (Other)
  Sender: FDA-Public Use
  Company Number: None

PATIENT
  Age: 80 Year
  Sex: Male
  Weight: 97.5 kg

DRUGS (10)
  1. COUMADIN [Suspect]
  2. TERAZOSIN HCL [Concomitant]
  3. TIOTROPIUM INH [Concomitant]
  4. HYDRALAZINE HCL [Concomitant]
  5. METOPROLOL TARTRATE [Concomitant]
  6. COUMADIN [Concomitant]
  7. POTASSIUM CHLORIDE [Concomitant]
  8. ALBUTEROL [Concomitant]
  9. LORAZEPAM [Concomitant]
  10. FUROSEMIDE [Concomitant]

REACTIONS (1)
  - EPISTAXIS [None]
